FAERS Safety Report 9049893 (Version 8)
Quarter: 2014Q2

REPORT INFORMATION
  Report Type: Spontaneous
  Country: US (occurrence: US)
  Receive Date: 20130205
  Receipt Date: 20140611
  Transmission Date: 20141212
  Serious: Yes (Hospitalization, Other)
  Sender: FDA-Public Use
  Company Number: US-B.I. PHARMACEUTICALS,INC./RIDGEFIELD-2013-BI-02417BP

PATIENT
  Age: 78 Year
  Sex: Male
  Weight: 96.16 kg

DRUGS (23)
  1. PRADAXA [Suspect]
     Indication: ANTICOAGULANT THERAPY
     Dosage: 300 MG
     Route: 065
     Dates: start: 20110412, end: 201111
  2. PRADAXA [Suspect]
     Indication: ATRIAL FIBRILLATION
     Dosage: 150 MG
     Route: 065
     Dates: start: 201111, end: 201112
  3. PRADAXA [Suspect]
     Indication: THROMBOSIS PROPHYLAXIS
     Dosage: 300 MG
     Route: 048
     Dates: start: 20120131, end: 20120205
  4. LORTAB [Concomitant]
     Route: 048
  5. MULTAQ [Concomitant]
     Dosage: 800 MG
     Route: 048
  6. SINEMET [Concomitant]
     Indication: MUSCLE SPASMS
     Route: 048
  7. LOMOTIL [Concomitant]
     Dosage: 7.5 MG
     Route: 048
  8. CIPRO [Concomitant]
     Indication: URINARY TRACT INFECTION
     Route: 065
  9. FLOMAX [Concomitant]
     Route: 065
  10. CARDURA [Concomitant]
     Dosage: 4 MG
     Route: 048
  11. OMEPRAZOLE [Concomitant]
     Dosage: 20 MG
     Route: 048
  12. ASA [Concomitant]
     Dosage: 81 MG
     Route: 048
  13. ATIVAN [Concomitant]
     Dosage: 3 MG
     Route: 048
  14. FOLIC ACID [Concomitant]
     Dosage: 1 MG
     Route: 048
  15. JALYN [Concomitant]
     Dosage: 0.5 MG
     Route: 048
  16. METOPROLOL TARTRATE [Concomitant]
     Dosage: 100 MG
     Route: 048
  17. AZO [Concomitant]
     Dosage: 4 ANZ
     Route: 065
  18. IMODIUM [Concomitant]
     Indication: DIARRHOEA
     Route: 065
  19. ALEVE [Concomitant]
     Indication: PAIN
     Dosage: 660 MG
     Route: 065
  20. LORAZEPAM [Concomitant]
     Route: 065
  21. SPIRIVA [Concomitant]
     Dosage: 18 MCG
     Route: 055
  22. SYMBICORT [Concomitant]
     Dosage: 4 ANZ
     Route: 055
  23. NORCO [Concomitant]
     Indication: PAIN
     Dosage: DOSE PER APPLICATION AND DAILY DOSE:325M-5MG
     Route: 048

REACTIONS (14)
  - Gastric ulcer haemorrhage [Unknown]
  - Haematuria [Unknown]
  - Haematochezia [Unknown]
  - Deep vein thrombosis [Recovered/Resolved]
  - Anaemia [Unknown]
  - Melaena [Unknown]
  - Haemoglobin decreased [Unknown]
  - Haemorrhagic anaemia [Unknown]
  - Coagulopathy [Unknown]
  - Incarcerated inguinal hernia [Recovered/Resolved]
  - Respiratory failure [Recovered/Resolved]
  - Bladder cancer [Unknown]
  - Melaena [Unknown]
  - Haematuria [Unknown]
